FAERS Safety Report 20716739 (Version 4)
Quarter: 2022Q3

REPORT INFORMATION
  Report Type: Report from Study
  Country: US (occurrence: US)
  Receive Date: 20220416
  Receipt Date: 20220718
  Transmission Date: 20221026
  Serious: Yes (Other)
  Sender: FDA-Public Use
  Company Number: US-BRISTOL-MYERS SQUIBB COMPANY-2022-019357

PATIENT
  Age: 27 Year
  Sex: Female
  Weight: 49.44 kg

DRUGS (2)
  1. ZEPOSIA [Suspect]
     Active Substance: OZANIMOD HYDROCHLORIDE
     Indication: Colitis ulcerative
     Route: 048
     Dates: start: 20220308
  2. ZEPOSIA [Suspect]
     Active Substance: OZANIMOD HYDROCHLORIDE
     Route: 048
     Dates: start: 20220308

REACTIONS (18)
  - Haematochezia [Unknown]
  - Colitis ulcerative [Unknown]
  - Pain [Not Recovered/Not Resolved]
  - Abdominal pain upper [Unknown]
  - Diarrhoea [Unknown]
  - Mucous stools [Unknown]
  - Cough [Unknown]
  - Peripheral swelling [Unknown]
  - Nasal congestion [Unknown]
  - Defaecation urgency [Unknown]
  - Malaise [Unknown]
  - Nausea [Unknown]
  - Constipation [Unknown]
  - Dyschezia [Unknown]
  - Abdominal discomfort [Unknown]
  - Decreased appetite [Unknown]
  - Arthralgia [Unknown]
  - Inflammation [Unknown]
